FAERS Safety Report 7308033-2 (Version None)
Quarter: 2011Q1

REPORT INFORMATION
  Report Type: 
  Country: None (occurrence: None)
  Receive Date: 20110223
  Receipt Date: 20100527
  Transmission Date: 20110831
  Serious: Yes (Hospitalization, Other)
  Sender: FDA-Public Use
  Company Number: US-BAYER-201015089NA

PATIENT
  Sex: Female
  Weight: 52.154 kg

DRUGS (12)
  1. YAZ [Suspect]
     Indication: ACNE
  2. UNCODEABLE ^UNCLASSIFIABLE^ [Concomitant]
     Dosage: UNK
     Dates: start: 20090501
  3. IBUPROFEN [Concomitant]
     Dosage: UNK
     Dates: start: 20050901
  4. YAZ [Suspect]
     Indication: CONTRACEPTION
     Dosage: UNK UNK, QD
     Route: 048
     Dates: start: 20090201, end: 20090511
  5. VITAMIN B-12 [Concomitant]
     Dosage: UNK
     Dates: start: 20090501
  6. ANTIBIOTICS [Concomitant]
     Dosage: UNK UNK, PRN
  7. MULTI-VITAMINS [Concomitant]
     Dosage: UNK
     Dates: start: 20090501
  8. NAPROXEN [Concomitant]
     Dosage: UNK
     Dates: start: 20090501
  9. YAZ [Suspect]
     Indication: PREMENSTRUAL SYNDROME
  10. SERTRALINE HYDROCHLORIDE [Concomitant]
     Indication: DEPRESSION
     Dosage: UNK
     Dates: start: 20090201
  11. PROTONIX [Concomitant]
     Dosage: UNK
     Dates: start: 20090501
  12. MAALOX [Concomitant]
     Dosage: UNK
     Dates: start: 20090501

REACTIONS (7)
  - NAUSEA [None]
  - DEEP VEIN THROMBOSIS [None]
  - OEDEMA PERIPHERAL [None]
  - HYPOAESTHESIA [None]
  - DYSPNOEA [None]
  - DEPRESSION [None]
  - WEIGHT BEARING DIFFICULTY [None]
